FAERS Safety Report 16881390 (Version 1)
Quarter: 2019Q4

REPORT INFORMATION
  Report Type: Spontaneous
  Country: GB (occurrence: GB)
  Receive Date: 20191003
  Receipt Date: 20191003
  Transmission Date: 20200122
  Serious: Yes (Other)
  Sender: FDA-Public Use
  Company Number: GB-TAKEDA-2019TEU011591

PATIENT
  Age: 49 Year
  Sex: Female
  Weight: 82.55 kg

DRUGS (3)
  1. OMEPRAZOLE. [Suspect]
     Active Substance: OMEPRAZOLE
     Indication: PROPHYLAXIS AGAINST GASTROINTESTINAL ULCER
     Dosage: 20 MILLIGRAM, QD
     Route: 048
     Dates: start: 20190731, end: 20190801
  2. INDOMETACIN [Concomitant]
     Active Substance: INDOMETHACIN
     Dosage: UNK
  3. LANSOPRAZOLE. [Suspect]
     Active Substance: LANSOPRAZOLE
     Indication: PROPHYLAXIS AGAINST GASTROINTESTINAL ULCER
     Dosage: 15 MILLIGRAM, QD
     Route: 048
     Dates: start: 20190902, end: 20190902

REACTIONS (8)
  - Dizziness [Recovered/Resolved]
  - Constipation [Recovered/Resolved]
  - Diarrhoea [Recovered/Resolved]
  - Abdominal pain upper [Recovered/Resolved]
  - Hypoaesthesia [Recovered/Resolved]
  - Nausea [Recovered/Resolved]
  - Hyperhidrosis [Recovered/Resolved]
  - Blindness unilateral [Recovered/Resolved]

NARRATIVE: CASE EVENT DATE: 20190731
